FAERS Safety Report 8983121 (Version 1)
Quarter: 2012Q4

REPORT INFORMATION
  Report Type: 
  Country: JP (occurrence: JP)
  Receive Date: 20121224
  Receipt Date: 20121224
  Transmission Date: 20130627
  Serious: Yes (Hospitalization, Other)
  Sender: FDA-Public Use
  Company Number: JP-ASTELLAS-2012JP011856

PATIENT
  Sex: Female

DRUGS (12)
  1. VESICARE [Suspect]
     Indication: POLLAKIURIA
     Dosage: 5 mg, UID/QD
     Route: 048
  2. SHAKUYAKUKANZOTO [Suspect]
     Dosage: UNK
     Route: 048
  3. FUROSEMIDE [Concomitant]
     Dosage: 40 mg, Unknown/D
     Route: 048
  4. OMERAP [Concomitant]
     Dosage: 10 mg, Unknown/D
     Route: 048
  5. PANTOSIN [Concomitant]
     Dosage: 3 g, Unknown/D
     Route: 048
  6. MAGNESIUM OXIDE [Concomitant]
     Dosage: 2 g, Unknown/D
     Route: 048
  7. MOBIC [Concomitant]
     Dosage: 10 mg, Unknown/D
     Route: 048
  8. METHYCOBAL [Concomitant]
     Dosage: 1500 ug, Unknown/D
     Route: 048
  9. LYRICA [Concomitant]
     Dosage: 75 mg, Unknown/D
     Route: 048
  10. HIRUBULIN N [Concomitant]
     Dosage: 15 mg, Unknown/D
     Route: 048
  11. REMINYL [Concomitant]
     Dosage: 8 mg, Unknown/D
     Route: 048
  12. BENZALIN                           /00036201/ [Concomitant]
     Dosage: 25 mg, Unknown/D
     Route: 048

REACTIONS (4)
  - Cardiac failure [Unknown]
  - Oedema [Unknown]
  - Hypokalaemia [Unknown]
  - Pollakiuria [None]
